FAERS Safety Report 9133713 (Version 1)
Quarter: 2013Q1

REPORT INFORMATION
  Report Type: Other
  Country: US (occurrence: US)
  Receive Date: 20130303
  Receipt Date: 20130303
  Transmission Date: 20140127
  Serious: Yes (Other)
  Sender: FDA-Public Use
  Company Number: US-US-EMD SERONO, INC.-7195748

PATIENT
  Age: 34 Year
  Sex: Female

DRUGS (1)
  1. CLOMIPHENE CITRATE [Suspect]
     Indication: INFERTILITY

REACTIONS (2)
  - Heterotopic pregnancy [Recovered/Resolved]
  - Oligohydramnios [Recovered/Resolved]
